FAERS Safety Report 5011647-6 (Version None)
Quarter: 2006Q2

REPORT INFORMATION
  Report Type: 
  Country: None (occurrence: None)
  Receive Date: 20060526
  Receipt Date: 20060518
  Transmission Date: 20061013
  Serious: Yes (Hospitalization)
  Sender: FDA-Public Use
  Company Number: US-JNJFOC-20060504323

PATIENT
  Sex: Female

DRUGS (11)
  1. REMICADE [Suspect]
     Indication: RHEUMATOID ARTHRITIS
     Route: 042
  2. DIOVAN [Concomitant]
  3. ESTROGENS SOL/INJ [Concomitant]
  4. MORPHINE [Concomitant]
  5. PREDNISONE TAB [Concomitant]
  6. PRILOSEC [Concomitant]
  7. REGLAN [Concomitant]
  8. SOMA [Concomitant]
  9. VALIUM [Concomitant]
  10. ZOLOFT [Concomitant]
  11. PLAVIX [Concomitant]

REACTIONS (1)
  - CORONARY ARTERY DISEASE [None]
